FAERS Safety Report 5512968-0 (Version None)
Quarter: 2007Q4

REPORT INFORMATION
  Report Type: 
  Country: None (occurrence: None)
  Receive Date: 20071112
  Receipt Date: 20071031
  Transmission Date: 20080405
  Serious: Yes (Life-Threatening, Hospitalization)
  Sender: FDA-Public Use
  Company Number: US-AMGEN-US213509

PATIENT
  Sex: Female

DRUGS (9)
  1. PANITUMUMAB [Suspect]
     Indication: COLORECTAL CANCER
     Route: 042
     Dates: start: 20070130, end: 20070220
  2. FLUOROURACIL [Concomitant]
     Route: 042
  3. IRINOTECAN HCL [Concomitant]
     Route: 042
  4. LEUCOVORIN [Concomitant]
     Route: 042
  5. DOXYCYCLINE [Concomitant]
     Route: 065
  6. IMODIUM [Concomitant]
     Route: 065
  7. PRILOSEC [Concomitant]
     Route: 065
  8. VICODIN [Concomitant]
     Route: 065
  9. FAMOTIDINE [Concomitant]
     Route: 065

REACTIONS (1)
  - RECTAL PERFORATION [None]
